FAERS Safety Report 4299944-3 (Version None)
Quarter: 2004Q1

REPORT INFORMATION
  Report Type: 
  Country: None (occurrence: None)
  Receive Date: 20040220
  Receipt Date: 20040209
  Transmission Date: 20041129
  Serious: Yes (Disabling)
  Sender: FDA-Public Use
  Company Number: PHFR2004GB00982

PATIENT
  Age: 76 Year
  Sex: Female
  Weight: 103 kg

DRUGS (20)
  1. DICLOFENAC SODIUM [Suspect]
     Indication: PAIN
     Route: 030
     Dates: start: 20030901, end: 20030901
  2. ISMN ^GENERICON^ [Concomitant]
  3. ASPIRIN C [Concomitant]
  4. THYROXINE [Concomitant]
  5. CODEINE [Concomitant]
  6. GTN [Concomitant]
  7. FOLIC ACID [Concomitant]
  8. RANITIDINE [Concomitant]
  9. ALLOPURINOL [Concomitant]
  10. TIOTROPIUM BROMIDE [Concomitant]
  11. SENNA [Concomitant]
  12. FRUSEMIDE [Concomitant]
  13. SALBUTAMOL [Concomitant]
  14. IRON SULFATETHIAMIN COMPOUND TAB [Concomitant]
  15. PARACETAMOL [Concomitant]
  16. QUININE [Concomitant]
  17. SIMVASTATIN [Concomitant]
  18. LACTULOSE [Concomitant]
  19. MIANSERIN [Concomitant]
  20. LETROZOLE [Concomitant]

REACTIONS (2)
  - DERMAL SINUS [None]
  - INJECTION SITE REACTION [None]
